FAERS Safety Report 4602057-1 (Version None)
Quarter: 2005Q1

REPORT INFORMATION
  Report Type: 
  Country: None (occurrence: None)
  Receive Date: 20050131
  Receipt Date: 20041216
  Transmission Date: 20050727
  Serious: Yes (Death)
  Sender: FDA-Public Use
  Company Number: 04P-163-0283807-00

PATIENT
  Age: 73 Year
  Sex: Female

DRUGS (1)
  1. SYNTHROID [Suspect]
     Indication: HYPOTHYROIDISM
     Dosage: 125 MCG, 1 IN 1 D, PER ORAL
     Route: 048

REACTIONS (1)
  - DEATH [None]
